FAERS Safety Report 8004739-0 (Version None)
Quarter: 2011Q4

REPORT INFORMATION
  Report Type: 
  Country: None (occurrence: None)
  Receive Date: 20111220
  Receipt Date: 20111205
  Transmission Date: 20120403
  Serious: Yes (Death, Life-Threatening, Hospitalization)
  Sender: FDA-Public Use
  Company Number: 1000025366

PATIENT
  Age: 70 Year
  Sex: Male
  Weight: 75 kg

DRUGS (4)
  1. ROFLUMILAST (ROFLUMILAST) (TABLETS) [Suspect]
     Indication: CHRONIC OBSTRUCTIVE PULMONARY DISEASE
     Dosage: 1 DOSAGE FORMS (1 DOSAGE FORMS, 1 IN 1 D), ORAL
     Route: 048
     Dates: start: 20110916, end: 20111029
  2. TIOTROPIUM BROMIDE (TIOTROPIUM BROMIDE) (AEROSOL FOR INHALATION) (TIOT [Concomitant]
  3. TRADITIONAL CHINESE MEDICINE (TRADITIONAL CHINESE MEDICINE) (TRADITION [Concomitant]
  4. SALBUTAMOL (SALBUTAMOL) (AEROSOL FOR INHALATION) (SALBUTAMOL) [Concomitant]

REACTIONS (3)
  - HEPATITIS B [None]
  - HEPATOMEGALY [None]
  - LIVER INJURY [None]
